FAERS Safety Report 7450431-0 (Version None)
Quarter: 2011Q2

REPORT INFORMATION
  Report Type: 
  Country: None (occurrence: None)
  Receive Date: 20110422
  Receipt Date: 20110413
  Transmission Date: 20111010
  Serious: Yes (Death, Life-Threatening, Other)
  Sender: FDA-Public Use
  Company Number: VISP-NO-1104S-0143

PATIENT
  Sex: Female

DRUGS (1)
  1. VISIPAQUE [Suspect]
     Indication: INTRACRANIAL ANEURYSM
     Dosage: 150 ML, INTRA-ARTERIAL
     Route: 013
     Dates: start: 20110412, end: 20110412

REACTIONS (6)
  - CONVULSION [None]
  - COMA [None]
  - LOSS OF CONSCIOUSNESS [None]
  - CARDIAC ARREST [None]
  - BRAIN OEDEMA [None]
  - BLOOD PRESSURE INCREASED [None]
